FAERS Safety Report 20201009 (Version 1)
Quarter: 2021Q4

REPORT INFORMATION
  Report Type: Other
  Country: None (occurrence: US)
  Receive Date: 20211217
  Receipt Date: 20211217
  Transmission Date: 20220303
  Serious: Yes (Life-Threatening, Hospitalization, Other)
  Sender: FDA-Public Use
  Company Number: US-Breckenridge Pharmaceutical, Inc.-2123157

PATIENT
  Age: 52 Year
  Sex: Female

DRUGS (3)
  1. LEVETIRACETAM [Suspect]
     Active Substance: LEVETIRACETAM
     Indication: Status epilepticus
  2. PROPOFOL [Concomitant]
     Active Substance: PROPOFOL
  3. LACOSAMIDE [Concomitant]
     Active Substance: LACOSAMIDE

REACTIONS (2)
  - Toxicity to various agents [Unknown]
  - Myoclonus [Unknown]
